FAERS Safety Report 5959889-7 (Version None)
Quarter: 2008Q4

REPORT INFORMATION
  Report Type: 
  Country: None (occurrence: None)
  Receive Date: 20081119
  Receipt Date: 20081119
  Transmission Date: 20090506
  Serious: Yes (Life-Threatening)
  Sender: FDA-Public Use
  Company Number: None

PATIENT
  Sex: Female
  Weight: 49.9 kg

DRUGS (3)
  1. CISPLATIN [Suspect]
     Indication: MULTIPLE MYELOMA
     Dosage: 10MG/M2 (150 MG) QD CI IV, DAY 1-4
     Route: 042
     Dates: start: 20080508
  2. APAP TAB [Concomitant]
  3. OXYCODONE HCL [Concomitant]

REACTIONS (6)
  - BLOOD CALCIUM DECREASED [None]
  - BLOOD MAGNESIUM DECREASED [None]
  - BLOOD POTASSIUM DECREASED [None]
  - LETHARGY [None]
  - UNRESPONSIVE TO STIMULI [None]
  - VENTRICULAR FIBRILLATION [None]
